FAERS Safety Report 25791768 (Version 1)
Quarter: 2025Q3

REPORT INFORMATION
  Report Type: Spontaneous
  Country: US (occurrence: None)
  Receive Date: 20250911
  Receipt Date: 20250911
  Transmission Date: 20251021
  Serious: Yes (Death)
  Sender: FDA-CTU
  Company Number: None

PATIENT
  Age: 82 Year
  Sex: Male
  Weight: 71.5 kg

DRUGS (1)
  1. AMVUTTRA [Suspect]
     Active Substance: VUTRISIRAN

REACTIONS (3)
  - Ventricular fibrillation [None]
  - Unresponsive to stimuli [None]
  - Pulseless electrical activity [None]

NARRATIVE: CASE EVENT DATE: 20250807
